FAERS Safety Report 7988897-X (Version None)
Quarter: 2011Q4

REPORT INFORMATION
  Report Type: 
  Country: None (occurrence: None)
  Receive Date: 20111215
  Receipt Date: 20111215
  Transmission Date: 20120403
  Serious: Yes (Other)
  Sender: FDA-Public Use
  Company Number: None

PATIENT
  Age: 21 Year
  Sex: Female
  Weight: 56.6996 kg

DRUGS (4)
  1. FLUOXETINE [Concomitant]
  2. RISPERIDONE [Suspect]
     Indication: OBSESSIVE-COMPULSIVE DISORDER
     Dosage: 0.5 MG ONCE A DAY
     Dates: start: 20110418
  3. RISPERIDONE [Suspect]
     Indication: ANXIETY
     Dosage: 0.5 MG ONCE A DAY
     Dates: start: 20110418
  4. RISPERIDONE [Suspect]
     Dosage: 1 MG. ONCE A DAY
     Dates: start: 20110520, end: 20111007

REACTIONS (3)
  - BLOOD PROLACTIN INCREASED [None]
  - BREAST DISCHARGE [None]
  - HYPOTHALAMO-PITUITARY DISORDER [None]
